FAERS Safety Report 7064713-8 (Version None)
Quarter: 2010Q4

REPORT INFORMATION
  Report Type: 
  Country: None (occurrence: None)
  Receive Date: 20101027
  Receipt Date: 20101020
  Transmission Date: 20110411
  Serious: Yes (Other)
  Sender: FDA-Public Use
  Company Number: US-US-EMD SERONO, INC.-7021912

PATIENT
  Sex: Female
  Weight: 92 kg

DRUGS (3)
  1. REBIF [Suspect]
     Indication: PRODUCT USED FOR UNKNOWN INDICATION
     Route: 058
     Dates: start: 20090611
  2. ADVIL [Concomitant]
     Indication: PREMEDICATION
  3. MAXALT [Concomitant]
     Indication: HEADACHE
     Dates: start: 20090611

REACTIONS (5)
  - BLOOD TRIGLYCERIDES ABNORMAL [None]
  - FEELING ABNORMAL [None]
  - GLUCOSE TOLERANCE IMPAIRED [None]
  - MENTAL IMPAIRMENT [None]
  - WEIGHT DECREASED [None]
